FAERS Safety Report 7987157-0 (Version None)
Quarter: 2011Q4

REPORT INFORMATION
  Report Type: 
  Country: None (occurrence: None)
  Receive Date: 20111216
  Receipt Date: 20110930
  Transmission Date: 20120403
  Serious: No
  Sender: FDA-Public Use
  Company Number: US-BRISTOL-MYERS SQUIBB COMPANY-16121931

PATIENT
  Age: 12 Year
  Sex: Female

DRUGS (4)
  1. ABILIFY [Suspect]
     Indication: DEPRESSION
     Dosage: DOSE REDUCED TO 2MG
  2. ABILIFY [Suspect]
     Indication: REACTIVE ATTACHMENT DISORDER OF INFANCY OR EARLY CHILDHOOD
     Dosage: DOSE REDUCED TO 2MG
  3. ABILIFY [Suspect]
     Indication: ATTENTION DEFICIT/HYPERACTIVITY DISORDER
     Dosage: DOSE REDUCED TO 2MG
  4. ABILIFY [Suspect]
     Indication: MENTAL RETARDATION
     Dosage: DOSE REDUCED TO 2MG

REACTIONS (1)
  - TARDIVE DYSKINESIA [None]
